FAERS Safety Report 5829059-1 (Version None)
Quarter: 2008Q3

REPORT INFORMATION
  Report Type: 
  Country: None (occurrence: None)
  Receive Date: 20080731
  Receipt Date: 20080728
  Transmission Date: 20090109
  Serious: Yes (Disabling, Other)
  Sender: FDA-Public Use
  Company Number: AR-TEVA-175007ISR

PATIENT
  Sex: Female

DRUGS (3)
  1. HYDROXYCHLOROQUINE SULFATE [Suspect]
     Route: 048
     Dates: start: 20050101
  2. FEPRADINOL [Concomitant]
     Indication: PAIN
     Dosage: MELOXICAM 15MG, PRIDINOL MEXILATE 4MG
     Route: 048
  3. ACECLOFENAC [Concomitant]
     Indication: PAIN
     Route: 048

REACTIONS (5)
  - ABDOMINAL PAIN UPPER [None]
  - DYSGEUSIA [None]
  - GASTRITIS [None]
  - RHEUMATOID ARTHRITIS [None]
  - VOMITING [None]
